FAERS Safety Report 4519892-0 (Version None)
Quarter: 2004Q4

REPORT INFORMATION
  Report Type: 
  Country: None (occurrence: None)
  Receive Date: 20041202
  Receipt Date: 20041202
  Transmission Date: 20050328
  Serious: Yes (Other)
  Sender: FDA-Public Use
  Company Number: None

PATIENT
  Age: 71 Year
  Sex: Female
  Weight: 59.9 kg

DRUGS (5)
  1. METRONIDAZOLE [Suspect]
     Indication: DIVERTICULITIS
     Dosage: 500MG  Q 6 HRS INTRAVENOUS
     Route: 042
     Dates: start: 20041116, end: 20041117
  2. ACETAMINOPHEN [Concomitant]
  3. VICODIN [Concomitant]
  4. TEMAZEPAM [Concomitant]
  5. METOCLOPRAMIDE [Concomitant]

REACTIONS (3)
  - DIZZINESS [None]
  - FEELING HOT [None]
  - INFUSION RELATED REACTION [None]
